FAERS Safety Report 6625893-9 (Version None)
Quarter: 2010Q1

REPORT INFORMATION
  Report Type: 
  Country: None (occurrence: None)
  Receive Date: 20100310
  Receipt Date: 20100301
  Transmission Date: 20100710
  Serious: Yes (Death)
  Sender: FDA-Public Use
  Company Number: GXKR2010FR02471

PATIENT

DRUGS (1)
  1. VERAPAMIL (NGX) [Suspect]
     Route: 065

REACTIONS (4)
  - CARDIAC ARREST [None]
  - LIFE SUPPORT [None]
  - MECHANICAL VENTILATION [None]
  - OVERDOSE [None]
